FAERS Safety Report 5999663-9 (Version None)
Quarter: 2008Q4

REPORT INFORMATION
  Report Type: 
  Country: None (occurrence: None)
  Receive Date: 20081210
  Receipt Date: 20080324
  Transmission Date: 20090506
  Serious: Yes (Other)
  Sender: FDA-Public Use
  Company Number: 46479

PATIENT
  Age: 27 Year
  Sex: Male
  Weight: 81.6475 kg

DRUGS (5)
  1. ETOMIDATE [Suspect]
     Indication: SEDATION
     Dosage: 20MG IV
     Route: 042
     Dates: start: 20080322
  2. MORPHINE [Concomitant]
  3. HYDROMORPHONE HCL [Concomitant]
  4. TOPICAL LIDOCAINE [Concomitant]
  5. ZOFRAN [Concomitant]

REACTIONS (1)
  - DRUG INEFFECTIVE [None]
